FAERS Safety Report 20909559 (Version 5)
Quarter: 2023Q2

REPORT INFORMATION
  Report Type: Report from Study
  Country: JP (occurrence: JP)
  Receive Date: 20220603
  Receipt Date: 20230622
  Transmission Date: 20230721
  Serious: Yes (Death, Hospitalization)
  Sender: FDA-Public Use
  Company Number: JP-SAKK-2022SA186409AA

PATIENT
  Age: 78 Year
  Sex: Male
  Weight: 46.9 kg

DRUGS (14)
  1. SARILUMAB [Suspect]
     Active Substance: SARILUMAB
     Indication: Rheumatoid arthritis
     Dosage: 200 MG, QOW
     Route: 058
     Dates: start: 20210707, end: 20220505
  2. PREDONINE [Concomitant]
     Active Substance: PREDNISOLONE
     Indication: Rheumatoid arthritis
     Dosage: 10 MG, QD
     Route: 048
     Dates: start: 20220113
  3. PREDONINE [Concomitant]
     Active Substance: PREDNISOLONE
     Dosage: 10 MG, QD
     Route: 048
     Dates: start: 20210415, end: 20210908
  4. PREDONINE [Concomitant]
     Active Substance: PREDNISOLONE
     Dosage: 5 MG, QD
     Route: 048
     Dates: start: 20210909, end: 20211013
  5. ALFACALCIDOL [Concomitant]
     Active Substance: ALFACALCIDOL
     Indication: Osteoporosis
     Dosage: 0.5 UG, QD
     Route: 048
     Dates: start: 20210708
  6. ALENDRONATE [Concomitant]
     Active Substance: ALENDRONATE SODIUM
     Indication: Osteoporosis
     Dosage: 35 MG, QW
     Route: 048
     Dates: start: 20201024
  7. OFEV [Concomitant]
     Active Substance: NINTEDANIB
     Indication: Interstitial lung disease
     Dosage: 300 MG, BID
     Route: 048
     Dates: start: 20220113
  8. CELECOXIB [Concomitant]
     Active Substance: CELECOXIB
     Indication: Rheumatoid arthritis
     Dosage: 400 MG, BID
     Route: 048
     Dates: start: 20210415
  9. TACROLIMUS [Concomitant]
     Active Substance: TACROLIMUS
     Indication: Rheumatoid arthritis
     Dosage: 3 G, QD
     Route: 048
     Dates: start: 20201210
  10. SULFAMETHOXAZOLE\TRIMETHOPRIM [Concomitant]
     Active Substance: SULFAMETHOXAZOLE\TRIMETHOPRIM
     Indication: Interstitial lung disease
     Dosage: 3 G, QD
     Route: 048
     Dates: start: 20201030
  11. MAGNESIUM OXIDE [Concomitant]
     Active Substance: MAGNESIUM OXIDE
     Indication: Constipation
     Dosage: 330 MG, QD
     Route: 048
     Dates: start: 20211209, end: 20220331
  12. IGURATIMOD [Concomitant]
     Active Substance: IGURATIMOD
     Indication: Interstitial lung disease
     Dosage: 50 MG, QW
     Route: 048
     Dates: start: 20220317
  13. LOPERAMIDE HYDROCHLORIDE [Concomitant]
     Active Substance: LOPERAMIDE HYDROCHLORIDE
     Indication: Diarrhoea
     Dosage: 2 MG, QD
     Route: 048
     Dates: start: 20220428
  14. ROSUVASTATIN CALCIUM [Concomitant]
     Active Substance: ROSUVASTATIN CALCIUM
     Indication: Dyslipidaemia
     Dosage: 2.5 MG, QD
     Route: 048

REACTIONS (13)
  - Cardiovascular disorder [Fatal]
  - Chills [Fatal]
  - Tachycardia [Fatal]
  - Blood pressure decreased [Fatal]
  - Body temperature increased [Fatal]
  - Bradycardia [Fatal]
  - Cardiac arrest [Fatal]
  - Pneumonia aspiration [Fatal]
  - Respiratory arrest [Fatal]
  - Altered state of consciousness [Fatal]
  - Interstitial lung disease [Not Recovered/Not Resolved]
  - Dyspnoea [Not Recovered/Not Resolved]
  - Atrial fibrillation [Unknown]

NARRATIVE: CASE EVENT DATE: 20220317
